FAERS Safety Report 6438732-6 (Version None)
Quarter: 2009Q4

REPORT INFORMATION
  Report Type: 
  Country: None (occurrence: None)
  Receive Date: 20091113
  Receipt Date: 20091105
  Transmission Date: 20100525
  Serious: Yes (Hospitalization)
  Sender: FDA-Public Use
  Company Number: TW-BAXTER-2009BH017155

PATIENT
  Sex: Female

DRUGS (1)
  1. TISSUCOL/TISSEEL DUO STIM4 [Suspect]
     Indication: SPINAL LAMINECTOMY
     Route: 065

REACTIONS (1)
  - INFECTION [None]
